FAERS Safety Report 7985782-4 (Version None)
Quarter: 2011Q4

REPORT INFORMATION
  Report Type: 
  Country: None (occurrence: None)
  Receive Date: 20111214
  Receipt Date: 20111130
  Transmission Date: 20120403
  Serious: Yes (Hospitalization, Other)
  Sender: FDA-Public Use
  Company Number: 2011MA017043

PATIENT
  Sex: Female
  Weight: 63.5036 kg

DRUGS (23)
  1. DETROL LA (CON.) [Concomitant]
  2. MUCINEX LA (CON.) [Concomitant]
  3. PROTONIX (CON.) [Concomitant]
  4. DIGOXIN [Suspect]
     Indication: CARDIAC DISORDER
     Dosage: 125 MCG;QD;PO
     Route: 048
     Dates: start: 20060301, end: 20080601
  5. HYDROCHLOROTHIAZIDE (CON.) [Concomitant]
  6. POTASSIUM CHLORIDE (CON.) [Concomitant]
  7. XOPENEX (CON.) [Concomitant]
  8. CEPHALEXIN (CON.) [Concomitant]
  9. CLONIDINE HCL (CON.) [Concomitant]
  10. PLAVIX (CON.) [Concomitant]
  11. PREDNISONE (CON.) [Concomitant]
  12. VERAPAMIL (CON.) [Concomitant]
  13. CALAN (CON.) [Concomitant]
  14. COLACE (CON.) [Concomitant]
  15. CARDIZEM LA (CON.) [Concomitant]
  16. CATAPRES (CON.) [Concomitant]
  17. FOSAMAX (CON.) [Concomitant]
  18. FUROSEMIDE (CON.) [Concomitant]
  19. LISINOPRIL (CON.) [Concomitant]
  20. SPIRIVA (CON.) [Concomitant]
  21. ADVAIR (CON.) [Concomitant]
  22. CLOTRIMAZOLE (CON.) [Concomitant]
  23. BLOOD THINNERS (CON.) [Concomitant]

REACTIONS (16)
  - HAEMATOMA [None]
  - RESPIRATORY DISTRESS [None]
  - PLEURAL EFFUSION [None]
  - DRUG LEVEL DECREASED [None]
  - ECONOMIC PROBLEM [None]
  - CARDIAC FAILURE CONGESTIVE [None]
  - DRUG LEVEL INCREASED [None]
  - ATELECTASIS [None]
  - MULTIPLE INJURIES [None]
  - CARDIAC DISORDER [None]
  - ANXIETY [None]
  - NAUSEA [None]
  - PAIN [None]
  - CARDIAC FAILURE [None]
  - ATRIAL FIBRILLATION [None]
  - CHRONIC OBSTRUCTIVE PULMONARY DISEASE [None]
